FAERS Safety Report 8557692-5 (Version None)
Quarter: 2012Q3

REPORT INFORMATION
  Report Type: 
  Country: None (occurrence: None)
  Receive Date: 20120801
  Receipt Date: 20120726
  Transmission Date: 20120928
  Serious: No
  Sender: FDA-Public Use
  Company Number: US-PFIZER INC-2012182152

PATIENT
  Sex: Female
  Weight: 79.365 kg

DRUGS (4)
  1. EFFEXOR XR [Suspect]
     Dosage: 300 MG, DAILY
     Route: 048
  2. EFFEXOR XR [Suspect]
     Dosage: 75 MG, DAILY
     Route: 048
     Dates: start: 19990101
  3. EFFEXOR XR [Suspect]
     Indication: DEPRESSION
     Dosage: 35 MG, DAILY
     Route: 048
     Dates: start: 19980101, end: 19990101
  4. PRISTIQ [Suspect]
     Indication: DEPRESSION
     Dosage: 25 MG, UNK
     Route: 048
     Dates: start: 20120726

REACTIONS (7)
  - CAFFEINE CONSUMPTION [None]
  - FATIGUE [None]
  - DECREASED INTEREST [None]
  - LETHARGY [None]
  - DRUG INEFFECTIVE [None]
  - SOMNOLENCE [None]
  - WRONG TECHNIQUE IN DRUG USAGE PROCESS [None]
